FAERS Safety Report 16883769 (Version 2)
Quarter: 2019Q4

REPORT INFORMATION
  Report Type: Spontaneous
  Country: DE (occurrence: DE)
  Receive Date: 20191004
  Receipt Date: 20191007
  Transmission Date: 20200122
  Serious: Yes (Death, Congenital Anomaly, Other)
  Sender: FDA-Public Use
  Company Number: DE-RANBAXY-2014R1-89323

PATIENT
  Age: 1 Day
  Sex: Male
  Weight: 2.34 kg

DRUGS (13)
  1. AZATHIOPRINE. [Suspect]
     Active Substance: AZATHIOPRINE
     Indication: PROPHYLAXIS AGAINST TRANSPLANT REJECTION
     Dosage: 100 MG, DAILY
     Route: 064
     Dates: start: 20130702, end: 20140114
  2. METHYLDOPA. [Suspect]
     Active Substance: METHYLDOPA
     Indication: RENAL HYPERTENSION
     Dosage: 250 MG, BID
     Route: 064
     Dates: start: 20130702, end: 20140114
  3. AMPICILLIN [Concomitant]
     Active Substance: AMPICILLIN
     Indication: ANTIBIOTIC PROPHYLAXIS
     Dosage: UNK
     Route: 064
     Dates: start: 20140114, end: 20140114
  4. DEKRISTOL 20000 I.E [Concomitant]
     Indication: VITAMIN SUPPLEMENTATION
     Dosage: 20000 IU, 1/WEEK
     Route: 064
     Dates: start: 20130702, end: 20131217
  5. PARTUSISTEN [Concomitant]
     Active Substance: FENOTEROL
     Indication: TOCOLYSIS
     Dosage: UNK
     Route: 064
     Dates: start: 20140114, end: 20140114
  6. PROGRAF [Suspect]
     Active Substance: TACROLIMUS
     Indication: PROPHYLAXIS AGAINST TRANSPLANT REJECTION
     Dosage: 5.5 MG, DAILY
     Route: 064
     Dates: start: 20130702, end: 20140114
  7. AMLODIPINE [Concomitant]
     Active Substance: AMLODIPINE BESYLATE
     Indication: RENAL HYPERTENSION
     Dosage: 7.5 MG, DAILY
     Route: 064
  8. ADALAT [Concomitant]
     Active Substance: NIFEDIPINE
     Indication: TOCOLYSIS
     Dosage: UNK
     Route: 064
  9. METOPROLOL. [Suspect]
     Active Substance: METOPROLOL
     Indication: RENAL HYPERTENSION
     Dosage: 142 MG, DAILY
     Route: 064
     Dates: start: 20130702, end: 20131217
  10. BELOC-ZOK MITE [Concomitant]
     Active Substance: METOPROLOL SUCCINATE
     Indication: RENAL HYPERTENSION
     Dosage: 70.75 MG, UNK [MG/D (47.5-0-23.75) ]/ SINCE WHEN?. PROBABLY THERAPY STARTED EARLIER. ()
     Route: 064
     Dates: start: 20140114, end: 20140114
  11. BETAMETHASONE. [Concomitant]
     Active Substance: BETAMETHASONE
     Indication: MATERNAL THERAPY TO ENHANCE FOETAL LUNG MATURITY
     Dosage: UNK
     Route: 064
     Dates: end: 20140114
  12. L-THYROXIN 25 HENNING [Concomitant]
     Indication: HYPOTHYROIDISM
     Dosage: 25 MICROGRAM, DAILY
     Route: 064
     Dates: start: 20130702, end: 20140114
  13. DAS GESUNDE PLUS - FOLS?URE 600 (NAHRUNGSERGAENZUNG) [Concomitant]
     Indication: PROPHYLAXIS OF NEURAL TUBE DEFECT
     Dosage: 0.6 MG, DAILY
     Route: 064
     Dates: start: 20130702, end: 20131217

REACTIONS (7)
  - Death neonatal [Fatal]
  - Polyhydramnios [Fatal]
  - Hydrops foetalis [Fatal]
  - Foetal exposure during pregnancy [Unknown]
  - Congenital cystic lung [Fatal]
  - Neonatal respiratory failure [Fatal]
  - Large for dates baby [Unknown]

NARRATIVE: CASE EVENT DATE: 20130702
